FAERS Safety Report 8624485-X (Version None)
Quarter: 2012Q3

REPORT INFORMATION
  Report Type: 
  Country: None (occurrence: None)
  Receive Date: 20120827
  Receipt Date: 20120816
  Transmission Date: 20120928
  Serious: Yes (Hospitalization, Other)
  Sender: FDA-Public Use
  Company Number: IE-BAYER-2012-063715

PATIENT
  Age: 18 Year
  Sex: Female

DRUGS (2)
  1. YASMIN [Suspect]
     Indication: ACNE
  2. GARDASIL [Suspect]
     Indication: IMMUNISATION
     Dosage: UNK
     Dates: start: 20110101

REACTIONS (4)
  - PULMONARY EMBOLISM [None]
  - CHEST DISCOMFORT [None]
  - UPPER RESPIRATORY TRACT INFECTION [None]
  - COUGH [None]
